FAERS Safety Report 9357962 (Version 1)
Quarter: 2013Q2

REPORT INFORMATION
  Report Type: Spontaneous
  Country: US (occurrence: US)
  Receive Date: 20130620
  Receipt Date: 20130620
  Transmission Date: 20140414
  Serious: No
  Sender: FDA-Public Use
  Company Number: US-PFIZER INC-2013179826

PATIENT
  Age: 72 Year
  Sex: Female
  Weight: 81.63 kg

DRUGS (5)
  1. TOVIAZ [Suspect]
     Indication: BLADDER SPASM
     Dosage: UNK, 1X/DAY
     Route: 048
     Dates: start: 20130607, end: 20130610
  2. AMLODIPINE [Concomitant]
     Indication: BLOOD PRESSURE ABNORMAL
     Dosage: 5 MG, 1X/DAY
  3. VITAMIN B12 [Concomitant]
     Dosage: UNK, MONTHLY
  4. FEMARA [Concomitant]
     Indication: NEOPLASM MALIGNANT
     Dosage: 2.5 MG, 1X/DAY
  5. ASPIRIN [Concomitant]
     Dosage: 81 MG, 1X/DAY

REACTIONS (2)
  - Drug ineffective [Unknown]
  - Condition aggravated [Unknown]
